FAERS Safety Report 4490672-8 (Version None)
Quarter: 2004Q4

REPORT INFORMATION
  Report Type: 
  Country: None (occurrence: None)
  Receive Date: 20041102
  Receipt Date: 20041026
  Transmission Date: 20050328
  Serious: Yes (Other)
  Sender: FDA-Public Use
  Company Number: US-GLAXOSMITHKLINE-A0531326A

PATIENT
  Age: 24 Year
  Sex: Female

DRUGS (2)
  1. PAXIL [Suspect]
     Dosage: 37.5MG PER DAY
     Route: 048
     Dates: start: 20031001
  2. NO CONCURRENT MEDICATION [Concomitant]

REACTIONS (3)
  - NEUTROPENIA [None]
  - WEIGHT DECREASED [None]
  - WEIGHT INCREASED [None]
